FAERS Safety Report 21304717 (Version 1)
Quarter: 2022Q3

REPORT INFORMATION
  Report Type: Spontaneous
  Country: US (occurrence: None)
  Receive Date: 20220907
  Receipt Date: 20220907
  Transmission Date: 20221027
  Serious: No
  Sender: FDA-Public Use
  Company Number: US-ARIS GLOBAL-202109-1601

PATIENT
  Sex: Male

DRUGS (10)
  1. OXERVATE [Suspect]
     Active Substance: CENEGERMIN-BKBJ
     Indication: Neurotrophic keratopathy
     Route: 047
     Dates: start: 20210904
  2. LISINOPRIL [Concomitant]
     Active Substance: LISINOPRIL
  3. CLARITIN [Concomitant]
     Active Substance: LORATADINE
  4. ASCORBIC ACID [Concomitant]
     Active Substance: ASCORBIC ACID
  5. VRAYLAR [Concomitant]
     Active Substance: CARIPRAZINE
  6. PRISTIQ EXTENDED-RELEASE [Concomitant]
     Active Substance: DESVENLAFAXINE SUCCINATE
     Dosage: EXTENDED RELEASE TABLET
  7. LAMICTAL [Concomitant]
     Active Substance: LAMOTRIGINE
  8. XANAX [Concomitant]
     Active Substance: ALPRAZOLAM
     Dosage: EXTENDED RELEASE TABLET
  9. XANAX [Concomitant]
     Active Substance: ALPRAZOLAM
     Dosage: EXTENDED RELEASE TABLET
  10. AMBIEN [Concomitant]
     Active Substance: ZOLPIDEM TARTRATE

REACTIONS (2)
  - Eye pain [Unknown]
  - Eye swelling [Unknown]
